FAERS Safety Report 20690763 (Version 2)
Quarter: 2022Q2

REPORT INFORMATION
  Report Type: Spontaneous
  Country: IT (occurrence: IT)
  Receive Date: 20220408
  Receipt Date: 20220617
  Transmission Date: 20220721
  Serious: Yes (Other)
  Sender: FDA-Public Use
  Company Number: IT-ROCHE-3033741

PATIENT
  Age: 61 Year
  Sex: Male
  Weight: 57 kg

DRUGS (6)
  1. PREDNISONE [Suspect]
     Active Substance: PREDNISONE
     Indication: Follicular lymphoma
     Dosage: 80 MILLIGRAM
     Dates: start: 20200505, end: 20201002
  2. DOXORUBICIN [Suspect]
     Active Substance: DOXORUBICIN
     Indication: Follicular lymphoma
     Dosage: 80 MILLIGRAM
     Dates: start: 20200505, end: 20201002
  3. OBINUTUZUMAB [Suspect]
     Active Substance: OBINUTUZUMAB
     Indication: Follicular lymphoma
     Dosage: 1000 MILLIGRAM
     Route: 042
     Dates: start: 20200505
  4. CYCLOPHOSPHAMIDE [Suspect]
     Active Substance: CYCLOPHOSPHAMIDE
     Indication: Follicular lymphoma
     Dosage: 1250 MILLIGRAM
     Dates: start: 20200505, end: 20201002
  5. VINCRISTINE [Suspect]
     Active Substance: VINCRISTINE
     Indication: Follicular lymphoma
     Dosage: 2 MILLIGRAM
     Dates: start: 20200505, end: 20201002
  6. SULFAMETHOXAZOLE\TRIMETHOPRIM [Concomitant]
     Active Substance: SULFAMETHOXAZOLE\TRIMETHOPRIM
     Indication: Follicular lymphoma
     Dosage: UNK

REACTIONS (2)
  - Neutropenia [Unknown]
  - COVID-19 [Unknown]

NARRATIVE: CASE EVENT DATE: 20201002
